FAERS Safety Report 22141335 (Version 1)
Quarter: 2023Q1

REPORT INFORMATION
  Report Type: Spontaneous
  Country: MA (occurrence: MA)
  Receive Date: 20230327
  Receipt Date: 20230327
  Transmission Date: 20230418
  Serious: No
  Sender: FDA-Public Use
  Company Number: MA-PFIZER INC-PV202300050789

PATIENT
  Age: 15 Year
  Sex: Male

DRUGS (1)
  1. GENOTROPIN [Suspect]
     Active Substance: SOMATROPIN
     Dosage: 1.7 MG, DAILY
     Route: 058
     Dates: start: 20230310, end: 20230314

REACTIONS (3)
  - Poor quality device used [Unknown]
  - Device occlusion [Unknown]
  - Incorrect dose administered by device [Unknown]
